FAERS Safety Report 8081344-1 (Version None)
Quarter: 2012Q1

REPORT INFORMATION
  Report Type: 
  Country: None (occurrence: None)
  Receive Date: 20120130
  Receipt Date: 20111229
  Transmission Date: 20120608
  Serious: No
  Sender: FDA-Public Use
  Company Number: US-MUTUAL PHARMACEUTICAL COMPANY, INC.-CLCY20110165

PATIENT
  Sex: Male
  Weight: 172.52 kg

DRUGS (3)
  1. NEXIUM [Concomitant]
     Indication: GASTROOESOPHAGEAL REFLUX DISEASE
     Route: 048
  2. ALLOPURINOL [Concomitant]
     Indication: BLOOD URIC ACID
  3. COLCRYS [Suspect]
     Indication: BLOOD URIC ACID INCREASED
     Route: 048
     Dates: start: 20111227, end: 20111227

REACTIONS (2)
  - ERYTHEMA [None]
  - OEDEMA PERIPHERAL [None]
